FAERS Safety Report 4464525-5 (Version None)
Quarter: 2004Q3

REPORT INFORMATION
  Report Type: 
  Country: None (occurrence: None)
  Receive Date: 20040929
  Receipt Date: 20040916
  Transmission Date: 20050211
  Serious: Yes (Hospitalization)
  Sender: FDA-Public Use
  Company Number: HQ3764327JUL2001

PATIENT
  Age: 70 Year
  Sex: Male

DRUGS (7)
  1. CORDARONE [Suspect]
     Indication: ATRIAL FIBRILLATION
     Dosage: 100 MG 1X PER 1 DAY
     Route: 048
     Dates: start: 19980701, end: 20000101
  2. CORDARONE [Suspect]
     Indication: ATRIAL FIBRILLATION
     Dosage: 100 MG 1X PER 1 DAY
     Route: 048
     Dates: start: 20000101
  3. VASTAREL (TRIMETAZIDINE HYDROCHLORIDE) [Concomitant]
  4. PRAVASTATIN [Concomitant]
  5. ASPEGIC 1000 [Concomitant]
  6. PREVISCAN (FLUINDIONE) [Concomitant]
  7. CAPTOPRIL [Concomitant]

REACTIONS (9)
  - ASTHENIA [None]
  - ATRIAL FIBRILLATION [None]
  - CHEST PAIN [None]
  - DIARRHOEA [None]
  - DISEASE RECURRENCE [None]
  - HYPERTHYROIDISM [None]
  - PAIN [None]
  - THYROIDITIS [None]
  - WEIGHT DECREASED [None]
